FAERS Safety Report 8401242-0 (Version None)
Quarter: 2012Q2

REPORT INFORMATION
  Report Type: 
  Country: None (occurrence: None)
  Receive Date: 20120530
  Receipt Date: 20120530
  Transmission Date: 20120825
  Serious: Yes (Death, Hospitalization)
  Sender: FDA-Public Use
  Company Number: None

PATIENT
  Sex: Female
  Weight: 11.1 kg

DRUGS (2)
  1. CYTARABINE [Suspect]
     Dosage: 2948 MG
     Dates: end: 20111101
  2. MITOXANTRONE HYDROCHLORIDE [Suspect]
     Dosage: 4 MG
     Dates: end: 20111108

REACTIONS (14)
  - HYDROCEPHALUS [None]
  - BLAST CELLS PRESENT [None]
  - HYPERTENSION [None]
  - HAEMOGLOBIN ABNORMAL [None]
  - HYPERBILIRUBINAEMIA [None]
  - PSEUDOMONAS TEST POSITIVE [None]
  - HAEMATOCRIT ABNORMAL [None]
  - HEPATITIS [None]
  - RESPIRATORY FAILURE [None]
  - HYPOTENSION [None]
  - HEPATIC LESION [None]
  - NUCLEAR MAGNETIC RESONANCE IMAGING BRAIN ABNORMAL [None]
  - SPLENIC LESION [None]
  - BONE MARROW DISORDER [None]
